FAERS Safety Report 8341057-5 (Version None)
Quarter: 2012Q2

REPORT INFORMATION
  Report Type: 
  Country: None (occurrence: None)
  Receive Date: 20120507
  Receipt Date: 20120427
  Transmission Date: 20120825
  Serious: Yes (Hospitalization, Congenital Anomaly)
  Sender: FDA-Public Use
  Company Number: US-GLAXOSMITHKLINE-A0814859A

PATIENT
  Sex: Male

DRUGS (5)
  1. PAXIL CR [Suspect]
     Indication: DEPRESSION
     Route: 064
     Dates: start: 20020820
  2. PAXIL [Suspect]
     Indication: DEPRESSION
     Dosage: 35MG PER DAY
     Route: 064
     Dates: start: 20000101, end: 20051121
  3. LORAZEPAM [Concomitant]
     Dates: start: 20020801
  4. PHENERGAN [Concomitant]
     Dosage: 25MG AT NIGHT
     Route: 064
  5. MULTI-VITAMINS [Concomitant]
     Route: 064

REACTIONS (22)
  - CLOACAL EXSTROPHY [None]
  - INTESTINAL MALROTATION [None]
  - ATTENTION DEFICIT/HYPERACTIVITY DISORDER [None]
  - DEPRESSED MOOD [None]
  - VESICOURETERIC REFLUX [None]
  - ANXIETY [None]
  - MULTIPLE CONGENITAL ABNORMALITIES [None]
  - CONGENITAL ANOMALY [None]
  - SUPRAVENTRICULAR TACHYCARDIA [None]
  - ADJUSTMENT DISORDER [None]
  - VENTRICULAR SEPTAL DEFECT [None]
  - ATRIAL SEPTAL DEFECT [None]
  - PENIS DISORDER [None]
  - CARDIAC MURMUR [None]
  - FOETAL EXPOSURE DURING PREGNANCY [None]
  - ANAL ATRESIA [None]
  - SCROTAL DISORDER [None]
  - CONGENITAL BLADDER ANOMALY [None]
  - HYPOSPADIAS [None]
  - PULMONARY ARTERY STENOSIS CONGENITAL [None]
  - PATENT DUCTUS ARTERIOSUS [None]
  - RENAL DYSPLASIA [None]
